FAERS Safety Report 8310757-5 (Version None)
Quarter: 2012Q2

REPORT INFORMATION
  Report Type: 
  Country: None (occurrence: None)
  Receive Date: 20120425
  Receipt Date: 20120417
  Transmission Date: 20120825
  Serious: Yes (Hospitalization, Other)
  Sender: FDA-Public Use
  Company Number: US-PFIZER INC-2011213904

PATIENT
  Sex: Female
  Weight: 70.295 kg

DRUGS (7)
  1. VISTARIL [Suspect]
     Dosage: UNK
  2. GEODON [Suspect]
     Indication: BIPOLAR DISORDER
     Dosage: 60 MG, 1X/DAY
     Route: 048
  3. DEPAKOTE [Concomitant]
     Indication: CONVULSION
     Dosage: UNK
  4. AMBIEN [Concomitant]
     Indication: INSOMNIA
     Dosage: UNK
  5. RISPERIDONE [Suspect]
     Dosage: UNK
  6. CELEXA [Suspect]
     Indication: DEPRESSION
     Dosage: UNK
  7. PROZAC [Suspect]
     Dosage: UNK

REACTIONS (3)
  - EMOTIONAL DISORDER [None]
  - SOMNOLENCE [None]
  - SUICIDE ATTEMPT [None]
